FAERS Safety Report 8960391 (Version 1)
Quarter: 2012Q4

REPORT INFORMATION
  Report Type: 
  Country: US (occurrence: US)
  Receive Date: 20121211
  Receipt Date: 20121211
  Transmission Date: 20130627
  Serious: Yes (Other)
  Sender: FDA-Public Use
  Company Number: CHPA2012US024557

PATIENT
  Age: 81 Year
  Sex: Female

DRUGS (1)
  1. DOAN^S [Suspect]
     Indication: POISONING
     Dosage: 0.5 DF, BID
     Route: 048

REACTIONS (5)
  - Spinal fracture [Recovered/Resolved]
  - Road traffic accident [Recovered/Resolved]
  - Therapeutic response unexpected [Unknown]
  - Off label use [Unknown]
  - Self-medication [None]
